FAERS Safety Report 20219342 (Version 1)
Quarter: 2021Q4

REPORT INFORMATION
  Report Type: Spontaneous
  Country: JP (occurrence: JP)
  Receive Date: 20211222
  Receipt Date: 20211222
  Transmission Date: 20220303
  Serious: Yes (Life-Threatening)
  Sender: FDA-Public Use
  Company Number: JP-ELI_LILLY_AND_COMPANY-JP202112007705

PATIENT
  Age: 60 Year
  Sex: Male
  Weight: 69 kg

DRUGS (16)
  1. DULOXETINE HYDROCHLORIDE [Suspect]
     Active Substance: DULOXETINE HYDROCHLORIDE
     Indication: Lumbar spinal stenosis
     Dosage: 60 MG, DAILY
     Route: 048
  2. HALOPERIDOL [Suspect]
     Active Substance: HALOPERIDOL
     Indication: Restlessness
     Dosage: 5 MG, QID
     Route: 030
  3. HALOPERIDOL [Suspect]
     Active Substance: HALOPERIDOL
     Indication: Postoperative delirium
  4. HALOPERIDOL [Suspect]
     Active Substance: HALOPERIDOL
     Indication: Delirium tremens
  5. METFORMIN HYDROCHLORIDE [Concomitant]
     Active Substance: METFORMIN HYDROCHLORIDE
     Dosage: 500 MG, DAILY
  6. ZOLPIDEM TARTRATE [Concomitant]
     Active Substance: ZOLPIDEM TARTRATE
     Dosage: 100 MG, DAILY
  7. ASPIRIN [Concomitant]
     Active Substance: ASPIRIN
     Dosage: 100 MG, DAILY
  8. LANSOPRAZOLE [Concomitant]
     Active Substance: LANSOPRAZOLE
     Dosage: 15 MG, DAILY
  9. TELMISARTAN [Concomitant]
     Active Substance: TELMISARTAN
     Dosage: 40 MG, DAILY
  10. NIFEDIPINE [Concomitant]
     Active Substance: NIFEDIPINE
     Dosage: 20 MG, DAILY
  11. TRAMADOL HYDROCHLORIDE [Concomitant]
     Active Substance: TRAMADOL HYDROCHLORIDE
     Dosage: 225 MG, DAILY
  12. ACETAMINOPHEN [Concomitant]
     Active Substance: ACETAMINOPHEN
     Dosage: 1950 MG, DAILY
  13. PREGABALIN [Concomitant]
     Active Substance: PREGABALIN
  14. CELECOXIB [Concomitant]
     Active Substance: CELECOXIB
     Dosage: 200 MG, DAILY
  15. MEXILETINE HYDROCHLORIDE [Concomitant]
     Active Substance: MEXILETINE HYDROCHLORIDE
     Dosage: 150 MG, DAILY
  16. SENNOSIDES [Concomitant]
     Active Substance: SENNOSIDES
     Dosage: 0.5 G, DAILY

REACTIONS (4)
  - Neuroleptic malignant syndrome [Recovered/Resolved]
  - Postoperative delirium [Recovered/Resolved]
  - Delirium tremens [Recovered/Resolved]
  - Restlessness [Recovered/Resolved]
